FAERS Safety Report 12441206 (Version 4)
Quarter: 2024Q2

REPORT INFORMATION
  Report Type: Spontaneous
  Country: FR (occurrence: FR)
  Receive Date: 20160607
  Receipt Date: 20240515
  Transmission Date: 20240715
  Serious: Yes (Death, Life-Threatening, Hospitalization, Other)
  Sender: FDA-Public Use
  Company Number: FR-ACCORD-041174

PATIENT
  Age: 62 Year
  Sex: Female
  Weight: 40 kg

DRUGS (7)
  1. MYCOPHENOLATE MOFETIL [Suspect]
     Active Substance: MYCOPHENOLATE MOFETIL
     Indication: Liver transplant
     Route: 048
     Dates: start: 20130529, end: 20130614
  2. TACROLIMUS [Suspect]
     Active Substance: TACROLIMUS
     Indication: Liver transplant
     Route: 048
     Dates: start: 20130529, end: 20130630
  3. PREDNISONE [Suspect]
     Active Substance: PREDNISONE
     Indication: Liver transplant
     Dosage: 20 MG, QD, FORMULATION UNKNOWN
     Route: 048
     Dates: start: 20130529, end: 20130630
  4. SOLU-MEDROL [Suspect]
     Active Substance: METHYLPREDNISOLONE SODIUM SUCCINATE
     Indication: Prophylaxis against transplant rejection
     Dosage: INTRAVENOUS DRIP
     Dates: start: 20130529, end: 20130630
  5. CELLCEPT [Suspect]
     Active Substance: MYCOPHENOLATE MOFETIL
     Indication: Immunosuppressant drug therapy
     Dosage: 2 G, QD,  FORMULATION UNKNOWN
     Route: 048
     Dates: start: 20130529, end: 20130614
  6. PROGRAF [Suspect]
     Active Substance: TACROLIMUS
     Indication: Liver transplant
     Dosage: 10 MG,QD
     Route: 048
     Dates: start: 20130529, end: 20130630
  7. PROGRAF [Suspect]
     Active Substance: TACROLIMUS
     Indication: Liver transplant
     Dosage: 10 MG,QD
     Route: 048
     Dates: start: 20130529, end: 20130630

REACTIONS (6)
  - Multiple organ dysfunction syndrome [Fatal]
  - Aspergillus infection [Fatal]
  - Toxoplasmosis [Fatal]
  - Coagulopathy [Fatal]
  - Cytomegalovirus infection reactivation [Fatal]
  - Respiratory distress [Fatal]

NARRATIVE: CASE EVENT DATE: 20130601
